FAERS Safety Report 4340571-7 (Version None)
Quarter: 2004Q2

REPORT INFORMATION
  Report Type: 
  Country: None (occurrence: None)
  Receive Date: 20040416
  Receipt Date: 20040416
  Transmission Date: 20050107
  Serious: Yes (Death, Other)
  Sender: FDA-Public Use
  Company Number: None

PATIENT
  Sex: Male
  Weight: 95.2554 kg

DRUGS (3)
  1. AVASTIN [Suspect]
     Indication: COLON CANCER METASTATIC
     Dosage: 400 MG IV Q 2 WEEKS
     Route: 042
     Dates: start: 20040326
  2. CAMPTOSAR [Concomitant]
  3. ATROPINE [Concomitant]

REACTIONS (4)
  - DYSPNOEA [None]
  - JAUNDICE [None]
  - OXYGEN SATURATION DECREASED [None]
  - PYREXIA [None]
